FAERS Safety Report 9233150 (Version 3)
Quarter: 2013Q2

REPORT INFORMATION
  Report Type: Spontaneous
  Country: GB (occurrence: GB)
  Receive Date: 20130416
  Receipt Date: 20130506
  Transmission Date: 20140414
  Serious: Yes (Other)
  Sender: FDA-Public Use
  Company Number: PHFR2013GB001729

PATIENT
  Age: 34 Year
  Sex: Male

DRUGS (2)
  1. CLOZARIL [Suspect]
     Indication: SCHIZOPHRENIA
     Dosage: UNK
     Route: 048
     Dates: start: 20011121
  2. CLOZARIL [Suspect]
     Dosage: 250 MG
     Route: 048

REACTIONS (2)
  - Urinary tract infection [Unknown]
  - White blood cell count decreased [Recovering/Resolving]
